FAERS Safety Report 6923760-4 (Version None)
Quarter: 2010Q3

REPORT INFORMATION
  Report Type: 
  Country: None (occurrence: None)
  Receive Date: 20100813
  Receipt Date: 20100806
  Transmission Date: 20110219
  Serious: Yes (Other)
  Sender: FDA-Public Use
  Company Number: US-JNJFOC-20100706144

PATIENT
  Sex: Male
  Weight: 93.44 kg

DRUGS (3)
  1. ULTRAM [Suspect]
     Indication: BACK PAIN
     Dosage: TWO 50 MG TABLETS EVERY 4-6 HOURS
     Route: 048
  2. LISINOPRIL [Concomitant]
     Indication: BLOOD PRESSURE
     Dosage: 20 MG ONCE A DAY
     Route: 048
  3. LORTAB [Concomitant]
     Indication: BACK PAIN
     Dosage: 7.5/500 MG TABLET/ 4 TIMES IN 24 HOURS
     Route: 048

REACTIONS (1)
  - MYOCARDIAL INFARCTION [None]
